FAERS Safety Report 9652373 (Version 1)
Quarter: 2013Q4

REPORT INFORMATION
  Report Type: Spontaneous
  Country: US (occurrence: US)
  Receive Date: 20131029
  Receipt Date: 20131029
  Transmission Date: 20140711
  Serious: No
  Sender: FDA-Public Use
  Company Number: US-BIOGENIDEC-2013BI076010

PATIENT
  Age: 36 Year
  Sex: Female

DRUGS (13)
  1. TECFIDERA [Suspect]
     Indication: MULTIPLE SCLEROSIS
     Route: 048
     Dates: start: 20130702, end: 20130717
  2. TECFIDERA [Suspect]
     Indication: MULTIPLE SCLEROSIS
     Route: 048
     Dates: start: 20130718
  3. JUNESTA [Concomitant]
  4. ZOFRAN [Concomitant]
  5. NASONEX [Concomitant]
  6. SPIRONOLACTONE [Concomitant]
  7. LASIX [Concomitant]
  8. VENLAFAXINE ER [Concomitant]
  9. OMEPRAZOLE [Concomitant]
  10. TURMERIC [Concomitant]
  11. GLUCOSAMINE [Concomitant]
  12. FISH OIL [Concomitant]
  13. RASPBERRY KETO CAP [Concomitant]

REACTIONS (2)
  - Nausea [Unknown]
  - Diarrhoea [Unknown]
